FAERS Safety Report 6334867-7 (Version None)
Quarter: 2009Q3

REPORT INFORMATION
  Report Type: 
  Country: None (occurrence: None)
  Receive Date: 20090831
  Receipt Date: 20090824
  Transmission Date: 20100115
  Serious: Yes (Death, Other)
  Sender: FDA-Public Use
  Company Number: BE-BAXTER-2009BH012811

PATIENT
  Age: 16 Year
  Sex: Male
  Weight: 65 kg

DRUGS (8)
  1. SUPRANE [Suspect]
     Indication: ANAESTHESIA
     Route: 055
     Dates: start: 20090724, end: 20090724
  2. NITROUS OXIDE [Suspect]
     Indication: ANAESTHESIA
     Route: 055
     Dates: start: 20090724, end: 20090724
  3. AUGMENTIN                               /SCH/ [Concomitant]
     Indication: APPENDICITIS
     Route: 042
     Dates: start: 20090724
  4. BUSCOPAN [Concomitant]
     Indication: PAIN
     Route: 042
     Dates: start: 20090724
  5. PARACETAMOL [Concomitant]
     Indication: PAIN
     Route: 042
     Dates: start: 20090724
  6. DIPRIVAN [Concomitant]
     Indication: ANAESTHESIA
     Route: 042
     Dates: start: 20090724
  7. LIDOCAINE [Concomitant]
     Indication: DRUG USE FOR UNKNOWN INDICATION
     Route: 042
     Dates: start: 20090724
  8. SUFENTANIL CITRATE [Concomitant]
     Indication: PAIN
     Route: 042
     Dates: start: 20090724

REACTIONS (7)
  - ALVEOLITIS [None]
  - CARDIO-RESPIRATORY ARREST [None]
  - COUGH [None]
  - DYSPNOEA [None]
  - HAEMOPTYSIS [None]
  - HYPOXIA [None]
  - RESPIRATORY DISTRESS [None]
